FAERS Safety Report 12144926 (Version 1)
Quarter: 2016Q1

REPORT INFORMATION
  Report Type: Spontaneous
  Country: US (occurrence: None)
  Receive Date: 20160303
  Receipt Date: 20160303
  Transmission Date: 20160526
  Serious: Yes (Disabling, Other)
  Sender: FDA-Public Use
  Company Number: None

PATIENT
  Age: 44 Year
  Sex: Female
  Weight: 69.85 kg

DRUGS (15)
  1. BENADRYL [Concomitant]
     Active Substance: DIPHENHYDRAMINE HYDROCHLORIDE
  2. VALERIAN [Concomitant]
     Active Substance: VALERIAN
  3. FLAXSEED [Concomitant]
     Active Substance: FLAX SEED
  4. CLARITIN-D 12 HOUR [Concomitant]
     Active Substance: LORATADINE\PSEUDOEPHEDRINE SULFATE
  5. IBUPROFEN. [Concomitant]
     Active Substance: IBUPROFEN
  6. L-LYSINE [Concomitant]
     Active Substance: LYSINE
  7. CLONAZEPAM. [Suspect]
     Active Substance: CLONAZEPAM
     Indication: SLEEP DISORDER
     Dosage: 2X 1 MG PILLS ONCE DAILY TAKEN BY MOUTH OVER TEN YEARS
     Route: 048
  8. ALBUTEROL. [Concomitant]
     Active Substance: ALBUTEROL
  9. MULTIVITAMIN [Concomitant]
     Active Substance: VITAMINS
  10. MELATONIN [Concomitant]
     Active Substance: MELATONIN
  11. MAGNESIUM [Concomitant]
     Active Substance: MAGNESIUM
  12. BIOTIN [Concomitant]
     Active Substance: BIOTIN
  13. LEVOTHYROXIN [Concomitant]
     Active Substance: LEVOTHYROXINE
  14. VITAMIN D [Concomitant]
     Active Substance: CHOLECALCIFEROL
  15. GABAPENTIN. [Concomitant]
     Active Substance: GABAPENTIN

REACTIONS (13)
  - Myalgia [None]
  - Alopecia [None]
  - Loss of libido [None]
  - Social avoidant behaviour [None]
  - Agoraphobia [None]
  - Sleep disorder [None]
  - Weight decreased [None]
  - Arthralgia [None]
  - Cognitive disorder [None]
  - Depression [None]
  - Bruxism [None]
  - Gastrointestinal disorder [None]
  - Anger [None]

NARRATIVE: CASE EVENT DATE: 20060109
